FAERS Safety Report 9217145 (Version 1)
Quarter: 2013Q2

REPORT INFORMATION
  Report Type: Spontaneous
  Country: None (occurrence: None)
  Receive Date: 20130404
  Receipt Date: 20130404
  Transmission Date: 20140414
  Serious: Yes (Other)
  Sender: FDA-Public Use
  Company Number: AG-2013-0823

PATIENT
  Sex: Male

DRUGS (1)
  1. LEUKERAN [Suspect]
     Indication: PRODUCT USED FOR UNKNOWN INDICATION

REACTIONS (3)
  - Dementia [None]
  - Condition aggravated [None]
  - Incorrect product storage [None]
